FAERS Safety Report 12230959 (Version 1)
Quarter: 2016Q2

REPORT INFORMATION
  Report Type: Spontaneous
  Country: JP (occurrence: JP)
  Receive Date: 20160401
  Receipt Date: 20160401
  Transmission Date: 20160815
  Serious: Yes (Other)
  Sender: FDA-Public Use
  Company Number: PHHY2016JP042278

PATIENT
  Age: 65 Year
  Sex: Male

DRUGS (4)
  1. 5 FLUORO URACIL [Suspect]
     Active Substance: FLUOROURACIL
     Indication: PANCREATIC CARCINOMA STAGE IV
     Route: 065
  2. IRINOTECAN [Suspect]
     Active Substance: IRINOTECAN
     Indication: PALLIATIVE CARE
  3. OXALIPLATIN. [Suspect]
     Active Substance: OXALIPLATIN
     Indication: PANCREATIC CARCINOMA STAGE IV
     Route: 065
  4. IRINOTECAN [Suspect]
     Active Substance: IRINOTECAN
     Indication: PANCREATIC CARCINOMA STAGE IV
     Route: 065

REACTIONS (8)
  - Pancreatic carcinoma metastatic [Unknown]
  - Retroperitoneal effusion [Unknown]
  - Deep vein thrombosis [Unknown]
  - Interstitial lung disease [Unknown]
  - Neutropenia [Unknown]
  - Fatigue [Unknown]
  - Diarrhoea [Unknown]
  - Condition aggravated [Unknown]
